FAERS Safety Report 23416770 (Version 1)
Quarter: 2024Q1

REPORT INFORMATION
  Report Type: Spontaneous
  Country: US (occurrence: None)
  Receive Date: 20240117
  Receipt Date: 20240117
  Transmission Date: 20240410
  Serious: Yes (Other)
  Sender: FDA-Public Use
  Company Number: None

PATIENT
  Age: 64 Year
  Sex: Male
  Weight: 116 kg

DRUGS (6)
  1. XELJANZ [Suspect]
     Active Substance: TOFACITINIB CITRATE
     Indication: Rheumatoid arthritis
     Dosage: 11 MG DAILY ORAL
     Route: 048
     Dates: start: 20230712, end: 20240117
  2. XELJANZ [Suspect]
     Active Substance: TOFACITINIB CITRATE
     Indication: Rheumatoid factor positive
  3. XELJANZ [Suspect]
     Active Substance: TOFACITINIB CITRATE
     Indication: Polyarthritis
  4. AMLODIPINE [Concomitant]
     Dates: start: 20230824
  5. LISINOPRIL [Concomitant]
     Dates: start: 20230824
  6. CHLORTHALIDONE [Concomitant]
     Dates: start: 20230223

REACTIONS (1)
  - Hypertension [None]

NARRATIVE: CASE EVENT DATE: 20240117
